FAERS Safety Report 9848542 (Version 1)
Quarter: 2013Q4

REPORT INFORMATION
  Report Type: Spontaneous
  Country: US (occurrence: None)
  Receive Date: 20131224
  Receipt Date: 20131224
  Transmission Date: 20140711
  Serious: Yes (Other)
  Sender: FDA-Public Use
  Company Number: PHEH2013US004433

PATIENT
  Age: 16 Year
  Sex: Female
  Weight: 103 kg

DRUGS (3)
  1. CLOZARIL (CLOZAPINE) UNKNOWN [Suspect]
     Indication: HALLUCINATION
     Route: 048
     Dates: start: 20120625, end: 20121012
  2. LEXAPRO (ESCITALOPRAM OXALATE) [Suspect]
     Indication: HALLUCINATION
     Dates: start: 20120529, end: 201206
  3. ESKALITH CR (LITHIUM CARBONATE) [Concomitant]

REACTIONS (2)
  - Hypertension [None]
  - Tachycardia [None]
